FAERS Safety Report 11774985 (Version 4)
Quarter: 2016Q1

REPORT INFORMATION
  Report Type: Spontaneous
  Country: US (occurrence: US)
  Receive Date: 20151124
  Receipt Date: 20160105
  Transmission Date: 20160525
  Serious: Yes (Death, Life-Threatening, Other)
  Sender: FDA-Public Use
  Company Number: GXBR2015US002620

PATIENT
  Age: 8 Month
  Sex: Female
  Weight: 9.52 kg

DRUGS (4)
  1. PULMICORT TURBUHALER [Suspect]
     Active Substance: BUDESONIDE
     Indication: CROUP INFECTIOUS
     Dosage: UNK DF, UNK
     Route: 065
  2. BUDESONIDE SANDOZ [Suspect]
     Active Substance: BUDESONIDE
     Indication: CROUP INFECTIOUS
     Dosage: 1 DF, TID
     Route: 055
     Dates: start: 20151113, end: 20151114
  3. EPINEPHRINE. [Suspect]
     Active Substance: EPINEPHRINE
     Indication: CROUP INFECTIOUS
     Dosage: UNK DF, UNK
     Route: 065
  4. ALBUTEROL. [Suspect]
     Active Substance: ALBUTEROL
     Indication: PRODUCT USED FOR UNKNOWN INDICATION
     Dosage: UNK DF, UNK
     Route: 055

REACTIONS (3)
  - Respiratory failure [Fatal]
  - Pseudomonas infection [Not Recovered/Not Resolved]
  - Cardio-respiratory arrest [Not Recovered/Not Resolved]

NARRATIVE: CASE EVENT DATE: 20151113
